FAERS Safety Report 5693946-8 (Version None)
Quarter: 2008Q2

REPORT INFORMATION
  Report Type: 
  Country: None (occurrence: None)
  Receive Date: 20080403
  Receipt Date: 20080331
  Transmission Date: 20081010
  Serious: Yes (Hospitalization)
  Sender: FDA-Public Use
  Company Number: US-BOEHRINGER INGELHEIM GMBH, GERMANY-2008-DE-01906GD

PATIENT

DRUGS (2)
  1. MORPHINE SULFATE [Suspect]
     Indication: ANALGESIC THERAPY
     Dosage: 20 MG EVERY 30 MIN
  2. MORPHINE SULFATE [Suspect]
     Indication: CANCER PAIN

REACTIONS (4)
  - DRUG DISPENSING ERROR [None]
  - DRUG EFFECT DECREASED [None]
  - FALL [None]
  - FRACTURE [None]
